FAERS Safety Report 20204262 (Version 1)
Quarter: 2021Q4

REPORT INFORMATION
  Report Type: Spontaneous
  Country: TR (occurrence: TR)
  Receive Date: 20211220
  Receipt Date: 20211220
  Transmission Date: 20220303
  Serious: No
  Sender: FDA-Public Use
  Company Number: TR-LUPIN PHARMACEUTICALS INC.-2021-24864

PATIENT
  Age: 30 Year
  Sex: Female

DRUGS (7)
  1. METHYLPREDNISOLONE [Suspect]
     Active Substance: METHYLPREDNISOLONE
     Indication: COVID-19
     Dosage: 40 MILLIGRAM, 1X1 (DOSE REDUCED ACCORDING TO CLINICAL MONITORING)
     Route: 042
  2. LOPINAVIR\RITONAVIR [Suspect]
     Active Substance: LOPINAVIR\RITONAVIR
     Indication: COVID-19
     Dosage: UNK, 200/50MG 2X2
     Route: 048
  3. ERTAPENEM [Suspect]
     Active Substance: ERTAPENEM
     Indication: COVID-19
     Dosage: 1 GRAM, 1X1
     Route: 042
  4. ENOXAPARIN [Suspect]
     Active Substance: ENOXAPARIN
     Indication: COVID-19
     Dosage: 6000 INTERNATIONAL UNIT, 2X1
     Route: 058
  5. ENOXAPARIN [Suspect]
     Active Substance: ENOXAPARIN
     Dosage: UNK
     Route: 065
  6. FAVIPIRAVIR [Suspect]
     Active Substance: FAVIPIRAVIR
     Indication: COVID-19
     Dosage: 1600 MILLIGRAM, 2X1600 MG
     Route: 048
  7. FAVIPIRAVIR [Suspect]
     Active Substance: FAVIPIRAVIR
     Dosage: 300 MILLIGRAM, 2X300 MG AFTER LOADING
     Route: 048

REACTIONS (1)
  - Off label use [Unknown]
